FAERS Safety Report 4342051-1 (Version None)
Quarter: 2004Q2

REPORT INFORMATION
  Report Type: 
  Country: None (occurrence: None)
  Receive Date: 20040415
  Receipt Date: 20040406
  Transmission Date: 20050107
  Serious: Yes (Disabling)
  Sender: FDA-Public Use
  Company Number: 2004023817

PATIENT
  Sex: Male

DRUGS (8)
  1. LIPITOR [Suspect]
     Indication: ILL-DEFINED DISORDER
  2. ZOLPIDEM TARTRATE [Concomitant]
  3. FENOFIBRATE [Concomitant]
  4. FUROSEMIDE [Concomitant]
  5. VALASRTAN (VALSARTAN) [Concomitant]
  6. ROSUVASTATIN (ROSUVASTATIN) [Concomitant]
  7. CELECOXIB (CELECOXIB) [Concomitant]
  8. TADALAFIL (TADALAFIL) [Concomitant]

REACTIONS (1)
  - ILL-DEFINED DISORDER [None]
